FAERS Safety Report 25379270 (Version 2)
Quarter: 2025Q2

REPORT INFORMATION
  Report Type: Report from Study
  Country: BR (occurrence: BR)
  Receive Date: 20250530
  Receipt Date: 20250620
  Transmission Date: 20250717
  Serious: Yes (Life-Threatening, Hospitalization)
  Sender: MERCK SHARP & DOHME LLC
  Company Number: BR-AstrazenecaRSG-0711-D926QC00001(Prod)000001

PATIENT
  Age: 49 Year
  Sex: Female
  Weight: 62 kg

DRUGS (42)
  1. PEMBROLIZUMAB [Suspect]
     Active Substance: PEMBROLIZUMAB
     Indication: Non-small cell lung cancer
     Route: 042
     Dates: start: 20241121, end: 20250324
  2. PEMBROLIZUMAB [Suspect]
     Active Substance: PEMBROLIZUMAB
     Indication: Non-small cell lung cancer
     Route: 042
     Dates: start: 20250324, end: 20250324
  3. PEMBROLIZUMAB [Suspect]
     Active Substance: PEMBROLIZUMAB
     Indication: Non-small cell lung cancer
     Route: 042
     Dates: start: 20241211, end: 20241211
  4. PEMBROLIZUMAB [Suspect]
     Active Substance: PEMBROLIZUMAB
     Indication: Non-small cell lung cancer
     Route: 042
     Dates: start: 20241230, end: 20241230
  5. PEMBROLIZUMAB [Suspect]
     Active Substance: PEMBROLIZUMAB
     Indication: Non-small cell lung cancer
     Route: 042
     Dates: start: 20241121, end: 20241121
  6. PEMBROLIZUMAB [Suspect]
     Active Substance: PEMBROLIZUMAB
     Indication: Non-small cell lung cancer
     Route: 042
     Dates: start: 20250122, end: 20250122
  7. PEMBROLIZUMAB [Suspect]
     Active Substance: PEMBROLIZUMAB
     Indication: Non-small cell lung cancer
     Route: 042
     Dates: start: 20250212, end: 20250212
  8. PEMBROLIZUMAB [Suspect]
     Active Substance: PEMBROLIZUMAB
     Indication: Non-small cell lung cancer
     Route: 042
     Dates: start: 20250305, end: 20250305
  9. OMEPRAZOLE SODIUM [Concomitant]
     Active Substance: OMEPRAZOLE SODIUM
     Indication: Gastric ulcer
     Route: 048
     Dates: start: 20241121
  10. LORATADINE [Concomitant]
     Active Substance: LORATADINE
     Indication: Pruritus
     Route: 048
     Dates: start: 20241231, end: 20250108
  11. PACLITAXEL [Suspect]
     Active Substance: PACLITAXEL
     Indication: Non-small cell lung cancer
     Dosage: 80 MG/M2, ONCE EVERY 1 WK
     Route: 042
     Dates: start: 20241121, end: 20241121
  12. PACLITAXEL [Suspect]
     Active Substance: PACLITAXEL
     Indication: Non-small cell lung cancer
     Dosage: 80 MG/M2, ONCE EVERY 1 WK
     Route: 042
     Dates: start: 20241211, end: 20241211
  13. PACLITAXEL [Suspect]
     Active Substance: PACLITAXEL
     Indication: Non-small cell lung cancer
     Dosage: 80 MG/M2, ONCE EVERY 1 WK
     Route: 042
     Dates: start: 20250115, end: 20250115
  14. PACLITAXEL [Suspect]
     Active Substance: PACLITAXEL
     Indication: Non-small cell lung cancer
     Dosage: 80 MG/M2, ONCE EVERY 1 WK
     Route: 042
     Dates: start: 20241218, end: 20241218
  15. PACLITAXEL [Suspect]
     Active Substance: PACLITAXEL
     Indication: Non-small cell lung cancer
     Dosage: 80 MG/M2, ONCE EVERY 1 WK
     Route: 042
     Dates: start: 20250205, end: 20250205
  16. PACLITAXEL [Suspect]
     Active Substance: PACLITAXEL
     Indication: Non-small cell lung cancer
     Dosage: 80 MG/M2, ONCE EVERY 1 WK
     Route: 042
     Dates: start: 20241127, end: 20241127
  17. PACLITAXEL [Suspect]
     Active Substance: PACLITAXEL
     Indication: Non-small cell lung cancer
     Dosage: 80 MG/M2, ONCE EVERY 1 WK
     Route: 042
     Dates: start: 20241230, end: 20241230
  18. PACLITAXEL [Suspect]
     Active Substance: PACLITAXEL
     Indication: Non-small cell lung cancer
     Dosage: 80 MG/M2, ONCE EVERY 1 WK
     Route: 042
     Dates: start: 20250108, end: 20250108
  19. PACLITAXEL [Suspect]
     Active Substance: PACLITAXEL
     Indication: Non-small cell lung cancer
     Dosage: 80 MG/M2, ONCE EVERY 1 WK
     Route: 042
     Dates: start: 20241204, end: 20241204
  20. PACLITAXEL [Suspect]
     Active Substance: PACLITAXEL
     Indication: Non-small cell lung cancer
     Dosage: 80 MG/M2, ONCE EVERY 1 WK
     Route: 042
     Dates: start: 20250129, end: 20250129
  21. PACLITAXEL [Suspect]
     Active Substance: PACLITAXEL
     Indication: Non-small cell lung cancer
     Dosage: 80 MG/M2, ONCE EVERY 1 WK
     Route: 042
     Dates: start: 20241223, end: 20241223
  22. PACLITAXEL [Suspect]
     Active Substance: PACLITAXEL
     Indication: Non-small cell lung cancer
     Dosage: 80 MG/M2, ONCE EVERY 1 WK
     Route: 042
     Dates: start: 20241121, end: 20250205
  23. PACLITAXEL [Suspect]
     Active Substance: PACLITAXEL
     Indication: Non-small cell lung cancer
     Dosage: 80 MG/M2, ONCE EVERY 1 WK
     Route: 042
     Dates: start: 20250122, end: 20250122
  24. DOXORUBICIN [Suspect]
     Active Substance: DOXORUBICIN
     Indication: HER2 negative breast cancer
     Route: 042
     Dates: start: 20250212, end: 20250324
  25. CEFEPIME [Concomitant]
     Active Substance: CEFEPIME HYDROCHLORIDE
     Indication: Adverse event
     Dosage: 2 G, TID (3 TIMES PER DAY)
     Route: 042
     Dates: start: 20250221
  26. DIPYRONE [Concomitant]
     Active Substance: DIPYRONE
     Indication: Breast pain
     Route: 048
     Dates: start: 202408
  27. DIPYRONE [Concomitant]
     Active Substance: DIPYRONE
     Indication: Breast pain
     Route: 048
     Dates: start: 202412
  28. DIPYRONE [Concomitant]
     Active Substance: DIPYRONE
     Indication: Breast pain
     Route: 048
  29. CARBOPLATIN [Suspect]
     Active Substance: CARBOPLATIN
     Indication: Non-small cell lung cancer
     Route: 042
     Dates: start: 20250129, end: 20250129
  30. CARBOPLATIN [Suspect]
     Active Substance: CARBOPLATIN
     Indication: Non-small cell lung cancer
     Route: 042
     Dates: start: 20241211, end: 20241211
  31. CARBOPLATIN [Suspect]
     Active Substance: CARBOPLATIN
     Indication: Non-small cell lung cancer
     Route: 042
     Dates: start: 20241121, end: 20241121
  32. CARBOPLATIN [Suspect]
     Active Substance: CARBOPLATIN
     Indication: Non-small cell lung cancer
     Route: 042
     Dates: start: 20241223, end: 20241223
  33. CARBOPLATIN [Suspect]
     Active Substance: CARBOPLATIN
     Indication: Non-small cell lung cancer
     Route: 042
     Dates: start: 20241204, end: 20241204
  34. CARBOPLATIN [Suspect]
     Active Substance: CARBOPLATIN
     Indication: Non-small cell lung cancer
     Route: 042
     Dates: start: 20241218, end: 20241218
  35. CARBOPLATIN [Suspect]
     Active Substance: CARBOPLATIN
     Indication: Non-small cell lung cancer
     Route: 042
     Dates: start: 20250108, end: 20250108
  36. CARBOPLATIN [Suspect]
     Active Substance: CARBOPLATIN
     Indication: Non-small cell lung cancer
     Route: 042
     Dates: start: 20241127, end: 20241127
  37. CARBOPLATIN [Suspect]
     Active Substance: CARBOPLATIN
     Indication: Non-small cell lung cancer
     Route: 042
     Dates: start: 20250122, end: 20250122
  38. CARBOPLATIN [Suspect]
     Active Substance: CARBOPLATIN
     Indication: Non-small cell lung cancer
     Route: 042
     Dates: start: 20250205, end: 20250205
  39. CARBOPLATIN [Suspect]
     Active Substance: CARBOPLATIN
     Indication: Non-small cell lung cancer
     Route: 042
     Dates: start: 20250115, end: 20250115
  40. CARBOPLATIN [Suspect]
     Active Substance: CARBOPLATIN
     Indication: Non-small cell lung cancer
     Route: 042
     Dates: start: 20241121, end: 20250205
  41. CARBOPLATIN [Suspect]
     Active Substance: CARBOPLATIN
     Indication: Non-small cell lung cancer
     Route: 042
     Dates: start: 20241230, end: 20241230
  42. CYCLOPHOSPHAMIDE [Suspect]
     Active Substance: CYCLOPHOSPHAMIDE
     Indication: HER2 negative breast cancer
     Route: 042
     Dates: start: 20250212, end: 20250324

REACTIONS (1)
  - Febrile neutropenia [Recovered/Resolved]

NARRATIVE: CASE EVENT DATE: 20250220
